FAERS Safety Report 6686741-4 (Version None)
Quarter: 2010Q2

REPORT INFORMATION
  Report Type: 
  Country: None (occurrence: None)
  Receive Date: 20100419
  Receipt Date: 20100408
  Transmission Date: 20101027
  Serious: Yes (Other)
  Sender: FDA-Public Use
  Company Number: JP-MERCK-1002USA03442

PATIENT
  Age: 81 Year
  Sex: Female

DRUGS (10)
  1. JANUVIA [Suspect]
     Indication: TYPE 2 DIABETES MELLITUS
     Route: 048
     Dates: start: 20091217, end: 20100131
  2. AMARYL [Suspect]
     Indication: TYPE 2 DIABETES MELLITUS
     Route: 048
  3. AMARYL [Suspect]
     Route: 048
     Dates: start: 20100203
  4. AMARYL [Suspect]
     Route: 048
     Dates: end: 20100131
  5. ACTOS [Suspect]
     Indication: TYPE 2 DIABETES MELLITUS
     Route: 048
  6. CLONAZEPAM [Concomitant]
     Route: 065
     Dates: start: 20080122
  7. LIVALO [Concomitant]
     Route: 065
     Dates: start: 20080120
  8. CANDESARTAN CILEXETIL [Concomitant]
     Route: 065
     Dates: start: 20081212
  9. AMLODIPINE BESYLATE [Concomitant]
     Route: 065
     Dates: start: 20080120
  10. PEPCID [Concomitant]
     Route: 048

REACTIONS (1)
  - HYPOGLYCAEMIA [None]
